FAERS Safety Report 15058952 (Version 3)
Quarter: 2018Q3

REPORT INFORMATION
  Report Type: Spontaneous
  Country: GR (occurrence: GR)
  Receive Date: 20180625
  Receipt Date: 20180702
  Transmission Date: 20181010
  Serious: Yes (Death, Life-Threatening, Hospitalization)
  Sender: FDA-Public Use
  Company Number: GR-B.I. PHARMACEUTICALS,INC./RIDGEFIELD-2018-BI-032368

PATIENT
  Age: 75 Year
  Sex: Male

DRUGS (1)
  1. PRAXBIND [Suspect]
     Active Substance: IDARUCIZUMAB
     Indication: PROCOAGULANT THERAPY
     Route: 042
     Dates: start: 20180616, end: 20180616

REACTIONS (5)
  - Cerebral haemorrhage [Fatal]
  - Immune thrombocytopenic purpura [Unknown]
  - Gingival bleeding [Unknown]
  - Epistaxis [Unknown]
  - Petechiae [Unknown]

NARRATIVE: CASE EVENT DATE: 20180616
